FAERS Safety Report 12160864 (Version 1)
Quarter: 2016Q1

REPORT INFORMATION
  Report Type: Spontaneous
  Country: US (occurrence: US)
  Receive Date: 20160308
  Receipt Date: 20160308
  Transmission Date: 20160526
  Serious: Yes (Hospitalization, Other)
  Sender: FDA-Public Use
  Company Number: US-ELI_LILLY_AND_COMPANY-US201602009470

PATIENT
  Age: 79 Year
  Sex: Male

DRUGS (1)
  1. CIALIS [Suspect]
     Active Substance: TADALAFIL
     Indication: ERECTILE DYSFUNCTION
     Dosage: 6.33 MG, QD
     Route: 065

REACTIONS (4)
  - Prostate cancer [Unknown]
  - Accident [Unknown]
  - Gait disturbance [Unknown]
  - Wrong technique in product usage process [Unknown]
